FAERS Safety Report 5394131-X (Version None)
Quarter: 2007Q3

REPORT INFORMATION
  Report Type: 
  Country: None (occurrence: None)
  Receive Date: 20070723
  Receipt Date: 20070711
  Transmission Date: 20080115
  Serious: Yes (Other)
  Sender: FDA-Public Use
  Company Number: GB-AMGEN-US234281

PATIENT
  Age: 42 Year
  Sex: Female
  Weight: 118 kg

DRUGS (4)
  1. ENBREL [Suspect]
     Indication: RHEUMATOID ARTHRITIS
     Route: 058
     Dates: start: 20070608, end: 20070626
  2. LANSOPRAZOLE [Concomitant]
     Dosage: UNKNOWN
     Route: 048
  3. PREDNISOLONE [Concomitant]
     Indication: RHEUMATOID ARTHRITIS
     Dosage: UNKNOWN
     Route: 048
  4. CALCIUM CHLORIDE [Concomitant]
     Dosage: UNKNOWN
     Route: 048

REACTIONS (1)
  - VASCULITIC RASH [None]
